FAERS Safety Report 13698187 (Version 1)
Quarter: 2017Q2

REPORT INFORMATION
  Report Type: Spontaneous
  Country: US (occurrence: US)
  Receive Date: 20170628
  Receipt Date: 20170628
  Transmission Date: 20170830
  Serious: No
  Sender: FDA-Public Use
  Company Number: US-TARO-2017TAR00413

PATIENT
  Sex: Female
  Weight: 72.56 kg

DRUGS (6)
  1. TIMOLOL IN OCUDOSE [Concomitant]
     Dosage: UNK, 2X/DAY
  2. LEVOTHYROXINE. [Concomitant]
     Active Substance: LEVOTHYROXINE
     Dosage: 88 ?G, 1X/DAY
  3. ACETAZOLAMIDE (LANNETT) [Suspect]
     Active Substance: ACETAZOLAMIDE
     Indication: GLAUCOMA
     Dosage: UNK
     Dates: start: 2017, end: 2017
  4. ATENOLOL. [Concomitant]
     Active Substance: ATENOLOL
     Dosage: 25 MG, 1X/DAY
  5. ACETAZOLAMIDE TABLETS 250 MG [Suspect]
     Active Substance: ACETAZOLAMIDE
     Indication: GLAUCOMA
     Dosage: 250 MG, 2X/DAY
     Route: 048
     Dates: start: 201702, end: 2017
  6. TRAVATAN Z [Concomitant]
     Active Substance: TRAVOPROST
     Dosage: UNK, 1X/DAY IN BOTH EYES

REACTIONS (2)
  - Reaction to drug excipients [Recovered/Resolved]
  - Diarrhoea [Recovered/Resolved]

NARRATIVE: CASE EVENT DATE: 2017
